FAERS Safety Report 25803899 (Version 1)
Quarter: 2025Q3

REPORT INFORMATION
  Report Type: Spontaneous
  Country: NP (occurrence: NP)
  Receive Date: 20250915
  Receipt Date: 20250915
  Transmission Date: 20251021
  Serious: Yes (Death)
  Sender: PFIZER
  Company Number: NP-PFIZER INC-PV202500110094

PATIENT
  Age: 72 Year
  Sex: Male

DRUGS (1)
  1. SUTENT [Suspect]
     Active Substance: SUNITINIB MALATE
     Indication: Renal cell carcinoma

REACTIONS (1)
  - Death [Fatal]

NARRATIVE: CASE EVENT DATE: 20250501
